FAERS Safety Report 8890311 (Version 1)
Quarter: 2012Q4

REPORT INFORMATION
  Report Type: 
  Country: CA (occurrence: CA)
  Receive Date: 20121106
  Receipt Date: 20121106
  Transmission Date: 20130627
  Serious: Yes (Other)
  Sender: FDA-Public Use
  Company Number: PHHO2005CA03078

PATIENT
  Sex: Female

DRUGS (5)
  1. SANDOSTATIN LAR (PATIENT BASIS) [Suspect]
     Indication: CARCINOID TUMOUR
     Dosage: 20 mg, every 4 weeks
     Dates: start: 20040616
  2. SANDOSTATIN LAR (PATIENT BASIS) [Suspect]
     Dosage: 10 mg, every 4 weeks
  3. HYDROCHLOROTHIAZIDE [Concomitant]
  4. METOPROLOL [Concomitant]
  5. ALTACE [Concomitant]

REACTIONS (11)
  - Hypertension [Unknown]
  - Liver disorder [Unknown]
  - Flushing [Unknown]
  - Palpitations [Unknown]
  - Glucose urine present [Unknown]
  - Decreased appetite [Unknown]
  - Dizziness [Recovering/Resolving]
  - Headache [Unknown]
  - Injection site pain [Unknown]
  - Nausea [Unknown]
  - Diarrhoea [Unknown]
